FAERS Safety Report 9917207 (Version 2)
Quarter: 2014Q1

REPORT INFORMATION
  Report Type: Spontaneous
  Country: BR (occurrence: BR)
  Receive Date: 20140221
  Receipt Date: 20140226
  Transmission Date: 20141002
  Serious: Yes (Hospitalization, Other)
  Sender: FDA-Public Use
  Company Number: BR-PFIZER INC-2014044323

PATIENT
  Age: 57 Year
  Sex: Female

DRUGS (7)
  1. ALDACTONE [Suspect]
     Indication: HEPATIC CIRRHOSIS
     Dosage: 100 MG, 2X/DAY (EVERY 12 HOURS)
     Route: 048
     Dates: start: 2013
  2. ALDACTONE [Suspect]
     Indication: HEPATITIS C
  3. SODIUM BENZOATE [Concomitant]
     Dosage: 5 MG, 2X/DAY
     Dates: start: 201312
  4. LASIX [Concomitant]
     Dosage: 40 MG, DAILY
     Dates: start: 201310
  5. NORFLOXACIN [Concomitant]
     Indication: INFECTION
     Dosage: 400 MG, DAILY
  6. OMEPRAZOLE [Concomitant]
     Indication: GASTRIC DISORDER
     Dosage: 20 MG, DAILY
     Dates: start: 2013
  7. PROPANOLOL [Concomitant]
     Indication: HEPATIC CIRRHOSIS
     Dosage: 40 MG, 2X/DAY
     Dates: start: 2013

REACTIONS (2)
  - Peritonitis [Unknown]
  - Hepatic encephalopathy [Unknown]
